FAERS Safety Report 5515461-4 (Version None)
Quarter: 2007Q4

REPORT INFORMATION
  Report Type: 
  Country: None (occurrence: None)
  Receive Date: 20071113
  Receipt Date: 20070222
  Transmission Date: 20080405
  Serious: No
  Sender: FDA-Public Use
  Company Number: A0640593A

PATIENT
  Age: 45 Year
  Sex: Male

DRUGS (1)
  1. COREG [Suspect]
     Route: 048

REACTIONS (1)
  - HUNGER [None]
